FAERS Safety Report 6240714-4 (Version None)
Quarter: 2009Q2

REPORT INFORMATION
  Report Type: 
  Country: None (occurrence: None)
  Receive Date: 20090623
  Receipt Date: 20090217
  Transmission Date: 20091009
  Serious: No
  Sender: FDA-Public Use
  Company Number: US-ASTRAZENECA-2009UW04546

PATIENT
  Age: 25117 Day
  Sex: Female
  Weight: 63.5 kg

DRUGS (7)
  1. PULMICORT FLEXHALER [Suspect]
     Indication: ASTHMA
     Route: 055
     Dates: start: 20090215
  2. FLEXERIL [Concomitant]
  3. CRESTOR [Concomitant]
  4. NEXIUM [Concomitant]
     Indication: GASTROOESOPHAGEAL REFLUX DISEASE
     Route: 048
  5. NEURONTIN [Concomitant]
  6. PREMARIN [Concomitant]
  7. LOTENSIN [Concomitant]
     Indication: HYPERTENSION

REACTIONS (3)
  - DRY MOUTH [None]
  - DRY THROAT [None]
  - INCORRECT DOSE ADMINISTERED [None]
